FAERS Safety Report 9614314 (Version 1)
Quarter: 2013Q4

REPORT INFORMATION
  Report Type: Spontaneous
  Country: US (occurrence: None)
  Receive Date: 20131008
  Receipt Date: 20131008
  Transmission Date: 20140711
  Serious: No
  Sender: FDA-Public Use
  Company Number: None

PATIENT
  Age: 67 None
  Sex: Male
  Weight: 78.2 kg

DRUGS (1)
  1. ZIPRASIDONE [Suspect]
     Indication: SCHIZOPHRENIA, PARANOID TYPE
     Route: 048
     Dates: start: 20111206, end: 20111215

REACTIONS (3)
  - Asthenia [None]
  - Coordination abnormal [None]
  - Balance disorder [None]
